FAERS Safety Report 9686116 (Version 2)
Quarter: 2013Q4

REPORT INFORMATION
  Report Type: Spontaneous
  Country: JP (occurrence: JP)
  Receive Date: 20131113
  Receipt Date: 20131218
  Transmission Date: 20140711
  Serious: Yes (Hospitalization)
  Sender: FDA-Public Use
  Company Number: PHHY2013JP129354

PATIENT
  Age: 59 Year
  Sex: Female

DRUGS (3)
  1. DIOVAN [Suspect]
     Indication: HYPERTENSION
     Dosage: UNK UKN, UNK
     Route: 048
  2. TENORMIN [Suspect]
     Indication: ARRHYTHMIA
     Dosage: UNK UKN, UNK
     Route: 048
     Dates: start: 201308
  3. TENORMIN [Suspect]
     Indication: EXTRASYSTOLES

REACTIONS (3)
  - Loss of consciousness [Recovered/Resolved]
  - Bradycardia [Recovered/Resolved]
  - Fall [Recovered/Resolved]
